FAERS Safety Report 13909507 (Version 2)
Quarter: 2017Q3

REPORT INFORMATION
  Report Type: Spontaneous
  Country: US (occurrence: US)
  Receive Date: 20170828
  Receipt Date: 20170910
  Transmission Date: 20171127
  Serious: No
  Sender: FDA-Public Use
  Company Number: US-ASTRAZENECA-2017SE86718

PATIENT
  Sex: Female
  Weight: 90.7 kg

DRUGS (1)
  1. SYMBICORT [Suspect]
     Active Substance: BUDESONIDE\FORMOTEROL FUMARATE DIHYDRATE
     Indication: CHRONIC OBSTRUCTIVE PULMONARY DISEASE
     Dosage: 160/4.5, UG ONE PUFF IN THE MORNING AND EVENING (TWO TIMES A DAY)
     Route: 055

REACTIONS (7)
  - Hypoaesthesia oral [Unknown]
  - Intentional product misuse [Unknown]
  - Tooth loss [Unknown]
  - Dry mouth [Unknown]
  - Wrong technique in product usage process [Unknown]
  - Cardiac failure congestive [Unknown]
  - Gingival bleeding [Unknown]
